FAERS Safety Report 14231887 (Version 1)
Quarter: 2017Q4

REPORT INFORMATION
  Report Type: Spontaneous
  Country: NZ (occurrence: NZ)
  Receive Date: 20171128
  Receipt Date: 20171128
  Transmission Date: 20180321
  Serious: Yes (Hospitalization)
  Sender: FDA-Public Use
  Company Number: BAXTER-2017BAX039065

PATIENT
  Age: 74 Year
  Sex: Male

DRUGS (8)
  1. CHLORPHENIRAMINE. [Suspect]
     Active Substance: CHLORPHENIRAMINE
     Indication: HYPOTENSION
  2. HYDROCORTISONE. [Suspect]
     Active Substance: HYDROCORTISONE
     Indication: HYPOTENSION
  3. MORPHINE [Suspect]
     Active Substance: MORPHINE
     Indication: CHEST PAIN
     Dates: start: 201711
  4. SALBUTAMOL [Suspect]
     Active Substance: ALBUTEROL
     Indication: ADVERSE EVENT
     Dosage: NEBULIZER
     Dates: start: 201711
  5. SODIUM CHLORIDE, 0.9%, SOLUTION FOR INFUSION [Suspect]
     Active Substance: SODIUM CHLORIDE
     Indication: MEDICATION DILUTION
     Dosage: COMPOUNDED WITH PACLITAXEL
  6. PACLITAXEL. [Suspect]
     Active Substance: PACLITAXEL
     Indication: PRODUCT USED FOR UNKNOWN INDICATION
     Dosage: COMPOUNDED WITH SODIUM CHLORIDE
  7. CHLORPHENIRAMINE. [Suspect]
     Active Substance: CHLORPHENIRAMINE
     Indication: CHEST PAIN
     Dates: start: 201711
  8. HYDROCORTISONE. [Suspect]
     Active Substance: HYDROCORTISONE
     Indication: CHEST PAIN
     Dates: start: 201711

REACTIONS (5)
  - Chest pain [None]
  - Hypotension [None]
  - Pyrexia [None]
  - Chills [None]
  - Wheezing [None]

NARRATIVE: CASE EVENT DATE: 201711
